FAERS Safety Report 16817268 (Version 1)
Quarter: 2019Q3

REPORT INFORMATION
  Report Type: Spontaneous
  Country: US (occurrence: US)
  Receive Date: 20190726
  Receipt Date: 20190726
  Transmission Date: 20191005
  Serious: No
  Sender: FDA-Public Use
  Company Number: None

PATIENT
  Sex: Female

DRUGS (7)
  1. VITAMIN C [Concomitant]
     Active Substance: ASCORBIC ACID
  2. AGTIGALL CAP [Concomitant]
  3. VITAMIN [Concomitant]
     Active Substance: VITAMINS
  4. OCALIVA [Suspect]
     Active Substance: OBETICHOLIC ACID
     Route: 048
     Dates: start: 20190413
  5. LEVOTHYROXIN TAB [Concomitant]
  6. METFORMIN TAB [Concomitant]
  7. SIMBASTATIN TAB [Concomitant]

REACTIONS (2)
  - Productive cough [None]
  - Cough [None]
